FAERS Safety Report 13822084 (Version 1)
Quarter: 2017Q3

REPORT INFORMATION
  Report Type: Spontaneous
  Country: US (occurrence: US)
  Receive Date: 20170801
  Receipt Date: 20170801
  Transmission Date: 20171127
  Serious: Yes (Other)
  Sender: FDA-Public Use
  Company Number: US-BAYER-2017-145189

PATIENT
  Age: 44 Year
  Sex: Female

DRUGS (1)
  1. MIRENA [Suspect]
     Active Substance: LEVONORGESTREL
     Dosage: 20 MCG/24HR, CONT
     Route: 015
     Dates: start: 20130319, end: 20140930

REACTIONS (14)
  - Headache [None]
  - Amnesia [None]
  - Tinnitus [None]
  - Depression [None]
  - Idiopathic intracranial hypertension [None]
  - Vision blurred [None]
  - Paraesthesia [None]
  - Nausea [None]
  - Weight increased [None]
  - Visual field defect [None]
  - Dizziness [None]
  - Fatigue [None]
  - Musculoskeletal pain [None]
  - Visual impairment [None]
